FAERS Safety Report 5317667-6 (Version None)
Quarter: 2007Q2

REPORT INFORMATION
  Report Type: 
  Country: None (occurrence: None)
  Receive Date: 20070507
  Receipt Date: 20070425
  Transmission Date: 20071010
  Serious: Yes (Life-Threatening, Hospitalization, Disabling, Other)
  Sender: FDA-Public Use
  Company Number: US-JNJFOC-20070406232

PATIENT
  Age: 46 Year
  Sex: Male
  Weight: 67.59 kg

DRUGS (8)
  1. TOPAMAX [Suspect]
     Route: 048
  2. TOPAMAX [Suspect]
     Route: 048
  3. TOPAMAX [Suspect]
     Route: 048
  4. TOPAMAX [Suspect]
     Indication: EPILEPSY
     Route: 048
  5. DILANTIN [Concomitant]
     Indication: EPILEPSY
     Dosage: 150 MG IN AM, 175 MG IN PM
     Route: 048
  6. KEPPRA [Concomitant]
     Indication: EPILEPSY
  7. LOVASTATIN [Concomitant]
     Route: 048
  8. ENALAPRIL [Concomitant]
     Indication: HYPERTENSION
     Route: 048

REACTIONS (3)
  - ABDOMINAL DISTENSION [None]
  - DEEP VEIN THROMBOSIS [None]
  - RESPIRATORY DISTRESS [None]
